FAERS Safety Report 9193231 (Version 1)
Quarter: 2013Q1

REPORT INFORMATION
  Report Type: Spontaneous
  Country: US (occurrence: None)
  Receive Date: 20130325
  Receipt Date: 20130325
  Transmission Date: 20140127
  Serious: Yes (Disabling)
  Sender: FDA-Public Use
  Company Number: None

PATIENT
  Age: 42 Year
  Sex: Female
  Weight: 58.97 kg

DRUGS (3)
  1. ASTEPRO NASAL SPRAY [Suspect]
  2. NEIL MED NASAL RINSE [Concomitant]
  3. RELPAX [Concomitant]

REACTIONS (1)
  - Anosmia [None]
